FAERS Safety Report 8492846-8 (Version None)
Quarter: 2012Q3

REPORT INFORMATION
  Report Type: 
  Country: None (occurrence: None)
  Receive Date: 20120706
  Receipt Date: 20120702
  Transmission Date: 20120928
  Serious: Yes (Death)
  Sender: FDA-Public Use
  Company Number: GB-MYLANLABS-2012S1010794

PATIENT
  Age: 40 Year
  Sex: Male

DRUGS (9)
  1. VENTOLIN [Concomitant]
     Indication: PRODUCT USED FOR UNKNOWN INDICATION
  2. ORAMORPH SR [Concomitant]
     Indication: PAIN
     Route: 048
     Dates: start: 20110707, end: 20111025
  3. ADCAL D3 [Concomitant]
     Indication: CROHN'S DISEASE
     Route: 048
     Dates: start: 20110808
  4. LANSOPRAZOLE [Concomitant]
     Indication: GASTRITIS
     Route: 048
     Dates: start: 20111019
  5. METHADONE HCL [Suspect]
     Indication: PAIN
     Route: 048
     Dates: start: 20111025, end: 20111030
  6. MULTI-VITAMIN [Concomitant]
     Indication: PRODUCT USED FOR UNKNOWN INDICATION
  7. DIAZEPAM [Concomitant]
     Indication: ANXIETY
     Route: 048
     Dates: start: 20111019
  8. CLARITHROMYCIN [Suspect]
     Indication: LOWER RESPIRATORY TRACT INFECTION
     Route: 048
     Dates: start: 20111028
  9. HUMIRA [Concomitant]
     Indication: CROHN'S DISEASE
     Route: 030
     Dates: start: 20111005, end: 20111019

REACTIONS (1)
  - INHIBITORY DRUG INTERACTION [None]
